FAERS Safety Report 7632582-0 (Version None)
Quarter: 2011Q3

REPORT INFORMATION
  Report Type: 
  Country: None (occurrence: None)
  Receive Date: 20110725
  Receipt Date: 20101020
  Transmission Date: 20111222
  Serious: No
  Sender: FDA-Public Use
  Company Number: US-BRISTOL-MYERS SQUIBB COMPANY-15343346

PATIENT
  Age: 90 Year
  Sex: Female

DRUGS (2)
  1. WARFARIN SODIUM [Suspect]
  2. FISH OIL [Interacting]

REACTIONS (2)
  - DRUG INTERACTION [None]
  - RASH ERYTHEMATOUS [None]
